FAERS Safety Report 19506891 (Version 1)
Quarter: 2021Q3

REPORT INFORMATION
  Report Type: Spontaneous
  Country: US (occurrence: US)
  Receive Date: 20210708
  Receipt Date: 20210708
  Transmission Date: 20211014
  Serious: Yes (Hospitalization)
  Sender: FDA-Public Use
  Company Number: None

PATIENT
  Age: 44 Year
  Sex: Male

DRUGS (3)
  1. TOBRAMYCIN 300MG/5ML TOBI GEQ [Suspect]
     Active Substance: TOBRAMYCIN
     Indication: BRONCHIECTASIS
     Route: 055
     Dates: start: 20210520
  2. SOD CHL 7% NEB [Concomitant]
  3. TOBRAMYCIN 300MG/5ML TOBI GEQ [Suspect]
     Active Substance: TOBRAMYCIN
     Indication: LOWER RESPIRATORY TRACT INFECTION
     Route: 055
     Dates: start: 20210520

REACTIONS (2)
  - Haemoptysis [None]
  - Pneumonia [None]

NARRATIVE: CASE EVENT DATE: 20210620
